FAERS Safety Report 4474225-3 (Version None)
Quarter: 2004Q4

REPORT INFORMATION
  Report Type: 
  Country: None (occurrence: None)
  Receive Date: 20041008
  Receipt Date: 20040929
  Transmission Date: 20050328
  Serious: Yes (Hospitalization)
  Sender: FDA-Public Use
  Company Number: US-2004-030387

PATIENT
  Age: 62 Year
  Sex: Female
  Weight: 79.4 kg

DRUGS (9)
  1. BETASERON [Suspect]
     Indication: MULTIPLE SCLEROSIS
     Dosage: 8 MIU, EVERY 2D, SUBCUTANEOUS
     Route: 058
     Dates: start: 20040413, end: 20040813
  2. BEXTRA [Suspect]
     Dosage: ORAL
     Route: 048
     Dates: start: 20040801, end: 20040828
  3. CLOMIPRAMINE HCL [Concomitant]
  4. TRAZODONE HCL [Concomitant]
  5. SIMVASTATIN (ZOCOR) (SIMVASTATIN) [Concomitant]
  6. TRICOR [Concomitant]
  7. AVANDIA [Concomitant]
  8. NEXIUM  /USA/ (ESOMEPRAZOLE MAGNESIUM) [Concomitant]
  9. NADOLOL [Concomitant]

REACTIONS (15)
  - ABDOMINAL DISTENSION [None]
  - CONSTIPATION [None]
  - CYSTITIS [None]
  - DIVERTICULITIS [None]
  - ECCHYMOSIS [None]
  - GASTROINTESTINAL HAEMORRHAGE [None]
  - GASTROINTESTINAL INFECTION [None]
  - HAEMOGLOBIN DECREASED [None]
  - HYPOKALAEMIA [None]
  - ILEUS [None]
  - KIDNEY INFECTION [None]
  - LARGE INTESTINE ANASTOMOSIS [None]
  - POST PROCEDURAL COMPLICATION [None]
  - RECTAL HAEMORRHAGE [None]
  - URINARY TRACT INFECTION [None]
